FAERS Safety Report 4597048-3 (Version None)
Quarter: 2005Q1

REPORT INFORMATION
  Report Type: 
  Country: None (occurrence: None)
  Receive Date: 20050301
  Receipt Date: 20050110
  Transmission Date: 20050727
  Serious: Yes (Hospitalization)
  Sender: FDA-Public Use
  Company Number: 2005001697

PATIENT
  Age: 70 Year
  Sex: Female
  Weight: 57 kg

DRUGS (2)
  1. CELEBREX [Suspect]
     Indication: ILL-DEFINED DISORDER
     Dosage: 200 MG (1 IN 1 D), ORAL
     Route: 048
     Dates: start: 20040920, end: 20040927
  2. MADOPAR (BENSERAZIDE HYDROCHLORIDE, LEVODOPA) [Concomitant]

REACTIONS (5)
  - EYELID OEDEMA [None]
  - GENERALISED OEDEMA [None]
  - OEDEMA PERIPHERAL [None]
  - PLEURAL EFFUSION [None]
  - WEIGHT INCREASED [None]
